FAERS Safety Report 5712817-1 (Version None)
Quarter: 2008Q2

REPORT INFORMATION
  Report Type: 
  Country: None (occurrence: None)
  Receive Date: 20080421
  Receipt Date: 20080421
  Transmission Date: 20081010
  Serious: Yes (Hospitalization)
  Sender: FDA-Public Use
  Company Number: None

PATIENT
  Age: 45 Year
  Sex: Female
  Weight: 41.2773 kg

DRUGS (1)
  1. RECLAST [Suspect]
     Indication: OSTEOPOROSIS
     Dosage: 5 MG/100ML.  1  IV
     Route: 042
     Dates: start: 20080415

REACTIONS (4)
  - BONE PAIN [None]
  - CHILLS [None]
  - MYALGIA [None]
  - PYREXIA [None]
